FAERS Safety Report 8281698-7 (Version None)
Quarter: 2012Q2

REPORT INFORMATION
  Report Type: 
  Country: None (occurrence: None)
  Receive Date: 20120413
  Receipt Date: 20120411
  Transmission Date: 20120825
  Serious: No
  Sender: FDA-Public Use
  Company Number: US-PFIZER INC-2012046030

PATIENT
  Sex: Female

DRUGS (3)
  1. CHANTIX [Suspect]
     Dosage: 1 MG, 2X/DAY
     Route: 048
     Dates: start: 20120101, end: 20120406
  2. CHANTIX [Suspect]
     Indication: SMOKING CESSATION THERAPY
     Dosage: 0.5 MG, 1X/DAY
     Route: 048
     Dates: start: 20120201, end: 20120201
  3. CHANTIX [Suspect]
     Dosage: UNK
     Route: 048
     Dates: start: 20120201, end: 20120101

REACTIONS (10)
  - DRUG INEFFECTIVE [None]
  - WEIGHT INCREASED [None]
  - HUNGER [None]
  - MUSCLE RIGIDITY [None]
  - PAIN IN EXTREMITY [None]
  - MUSCLE SPASMS [None]
  - VOMITING [None]
  - LIMB INJURY [None]
  - HYPERPHAGIA [None]
  - DYSPEPSIA [None]
